FAERS Safety Report 4278008-9 (Version None)
Quarter: 2004Q1

REPORT INFORMATION
  Report Type: 
  Country: None (occurrence: None)
  Receive Date: 20040121
  Receipt Date: 20040115
  Transmission Date: 20041129
  Serious: Yes (Hospitalization, Other)
  Sender: FDA-Public Use
  Company Number: THQ2004A00022

PATIENT
  Age: 36 Year
  Sex: Male

DRUGS (5)
  1. LANSOPRAZOLE [Suspect]
     Indication: GASTRITIS
     Dosage: 30 M (1 D) PER ORAL
     Route: 048
     Dates: start: 20031127, end: 20031210
  2. FLUCLOXACILLIN (FLUCLOXACILLIN) [Concomitant]
  3. SAND-K (POTASSIUM CHLORIDE) [Concomitant]
  4. RANITIDINE (DOMPERIDONE) [Concomitant]
  5. FORTISIPS (FORTISIP) [Concomitant]

REACTIONS (4)
  - ANTIMITOCHONDRIAL ANTIBODY POSITIVE [None]
  - BLOOD CREATININE INCREASED [None]
  - BLOOD UREA INCREASED [None]
  - RENAL IMPAIRMENT [None]
